FAERS Safety Report 19181769 (Version 1)
Quarter: 2021Q2

REPORT INFORMATION
  Report Type: Spontaneous
  Country: PL (occurrence: PL)
  Receive Date: 20210426
  Receipt Date: 20210426
  Transmission Date: 20210717
  Serious: Yes (Life-Threatening, Other)
  Sender: FDA-Public Use
  Company Number: PL-GILEAD-2021-0519573

PATIENT
  Sex: Female
  Weight: 73 kg

DRUGS (5)
  1. EPCLUSA [Suspect]
     Active Substance: SOFOSBUVIR\VELPATASVIR
     Indication: CHRONIC HEPATITIS C
     Dosage: 1 DOSAGE FORM
     Route: 048
     Dates: start: 20200821, end: 20201112
  2. HEPAREGEN [Concomitant]
  3. PROURSAN [Concomitant]
     Active Substance: URSODIOL
  4. SPIRONOL [Concomitant]
     Active Substance: SPIRONOLACTONE
  5. PROPRANOLOL [Concomitant]
     Active Substance: PROPRANOLOL HYDROCHLORIDE

REACTIONS (1)
  - Treatment failure [Not Recovered/Not Resolved]
